FAERS Safety Report 7516411-1 (Version None)
Quarter: 2011Q2

REPORT INFORMATION
  Report Type: 
  Country: None (occurrence: None)
  Receive Date: 20110601
  Receipt Date: 20110503
  Transmission Date: 20111010
  Serious: Yes (Other)
  Sender: FDA-Public Use
  Company Number: US-BAYER-2011-022943

PATIENT
  Age: 31 Year
  Sex: Female
  Weight: 98.866 kg

DRUGS (2)
  1. RESPIRATORY SYSTEM [Concomitant]
     Dosage: 5 MG, DAILY, PRN
     Route: 048
  2. YASMIN [Suspect]
     Indication: CONTRACEPTION
     Dosage: 1 DF, QD
     Route: 048
     Dates: start: 20030101, end: 20040101

REACTIONS (3)
  - ABDOMINAL PAIN [None]
  - GALLBLADDER DISORDER [None]
  - CHOLECYSTITIS CHRONIC [None]
